FAERS Safety Report 16982120 (Version 2)
Quarter: 2019Q4

REPORT INFORMATION
  Report Type: Spontaneous
  Country: US (occurrence: US)
  Receive Date: 20191101
  Receipt Date: 20191106
  Transmission Date: 20200122
  Serious: No
  Sender: FDA-Public Use
  Company Number: US-009507513-1910USA017643

PATIENT
  Sex: Female

DRUGS (1)
  1. SIMVASTATIN TABLETS, USP [Suspect]
     Active Substance: SIMVASTATIN
     Dosage: UNK
     Route: 048

REACTIONS (3)
  - Drug hypersensitivity [Unknown]
  - Myalgia [Unknown]
  - Rash [Unknown]
